FAERS Safety Report 8350971 (Version 2)
Quarter: 2013Q2

REPORT INFORMATION
  Report Type: Spontaneous
  Country: US (occurrence: US)
  Receive Date: 20120124
  Receipt Date: 20130402
  Transmission Date: 20140414
  Serious: Yes (Other)
  Sender: FDA-Public Use
  Company Number: US-ROCHE-1032797

PATIENT
  Sex: Male
  Weight: 70.37 kg

DRUGS (4)
  1. ACCUTANE [Suspect]
     Indication: ACNE
     Route: 065
     Dates: start: 19860612, end: 19861113
  2. ACCUTANE [Suspect]
     Route: 065
     Dates: start: 1985, end: 1986
  3. ACCUTANE [Suspect]
     Route: 065
     Dates: start: 1988
  4. ASPIRIN [Concomitant]

REACTIONS (4)
  - Colitis ulcerative [Unknown]
  - Inflammatory bowel disease [Unknown]
  - Injury [Unknown]
  - Depression [Not Recovered/Not Resolved]
